FAERS Safety Report 20482952 (Version 1)
Quarter: 2022Q1

REPORT INFORMATION
  Report Type: Spontaneous
  Country: US (occurrence: US)
  Receive Date: 20220217
  Receipt Date: 20220217
  Transmission Date: 20220423
  Serious: No
  Sender: FDA-Public Use
  Company Number: US-Ipsen Biopharmaceuticals, Inc.-2022-03839

PATIENT
  Age: 58 Year
  Sex: Female

DRUGS (2)
  1. DYSPORT [Suspect]
     Active Substance: ABOBOTULINUMTOXINA
     Indication: Skin cosmetic procedure
     Dosage: 132IU
     Route: 065
     Dates: start: 202110, end: 202110
  2. HYALURONIC ACID\LIDOCAINE [Concomitant]
     Active Substance: HYALURONIC ACID\LIDOCAINE
     Dosage: 2 SYRINGES
     Route: 065
     Dates: start: 202110, end: 202110

REACTIONS (3)
  - Inflammation [Unknown]
  - Prescribed overdose [Unknown]
  - Prescribed overdose [Unknown]

NARRATIVE: CASE EVENT DATE: 20211001
